FAERS Safety Report 10188729 (Version 1)
Quarter: 2014Q2

REPORT INFORMATION
  Report Type: Spontaneous
  Country: US (occurrence: US)
  Receive Date: 20140522
  Receipt Date: 20140522
  Transmission Date: 20141212
  Serious: No
  Sender: FDA-Public Use
  Company Number: US-SA-2014SA021515

PATIENT
  Age: 61 Year
  Sex: Female
  Weight: 61 kg

DRUGS (2)
  1. SOLOSTAR [Suspect]
     Indication: DEVICE THERAPY
     Dates: start: 20131108, end: 20140106
  2. LANTUS SOLOSTAR [Suspect]
     Indication: DIABETES MELLITUS
     Dosage: DOSE:48 UNIT(S)
     Route: 051
     Dates: start: 20131108, end: 20140106

REACTIONS (2)
  - Blood glucose increased [Unknown]
  - Expired product administered [Unknown]
